FAERS Safety Report 10064220 (Version 1)
Quarter: 2014Q2

REPORT INFORMATION
  Report Type: Report from Study
  Country: CA (occurrence: CA)
  Receive Date: 20140408
  Receipt Date: 20140408
  Transmission Date: 20141212
  Serious: Yes (Hospitalization)
  Sender: FDA-Public Use
  Company Number: CA-IPSEN BIOPHARMACEUTICALS, INC.-2014-1703

PATIENT
  Age: 54 Year
  Sex: Male

DRUGS (1)
  1. SOMATULINE 120 MG [Suspect]
     Indication: NEUROENDOCRINE TUMOUR
     Dosage: 120MG
     Route: 058
     Dates: start: 20140227

REACTIONS (1)
  - Hospitalisation [Unknown]
